FAERS Safety Report 21873395 (Version 1)
Quarter: 2023Q1

REPORT INFORMATION
  Report Type: Spontaneous
  Country: FI (occurrence: FI)
  Receive Date: 20230117
  Receipt Date: 20230117
  Transmission Date: 20230418
  Serious: Yes (Other)
  Sender: FDA-Public Use
  Company Number: FI-002147023-NVSC2022FI275368

PATIENT
  Sex: Female

DRUGS (5)
  1. SILDENAFIL [Suspect]
     Active Substance: SILDENAFIL
     Indication: Product used for unknown indication
     Dosage: UNK
     Route: 065
  2. RUXOLITINIB [Suspect]
     Active Substance: RUXOLITINIB
     Indication: Polycythaemia vera
     Dosage: UNK
     Route: 065
     Dates: start: 202102
  3. ILOPROST [Concomitant]
     Active Substance: ILOPROST
     Indication: Skin ulcer
     Dosage: UNK, ONCE/SINGLE, TOTAL
     Route: 065
  4. ASPIRIN [Concomitant]
     Active Substance: ASPIRIN
     Indication: Skin ulcer
     Dosage: UNK
     Route: 065
  5. DALTEPARIN [Concomitant]
     Active Substance: DALTEPARIN
     Indication: Skin ulcer
     Dosage: UNK
     Route: 065

REACTIONS (3)
  - Osteomyelitis [Unknown]
  - Platelet count increased [Unknown]
  - Product use issue [Unknown]
